FAERS Safety Report 20007036 (Version 2)
Quarter: 2022Q2

REPORT INFORMATION
  Report Type: Spontaneous
  Country: US (occurrence: US)
  Receive Date: 20211028
  Receipt Date: 20220516
  Transmission Date: 20220721
  Serious: No
  Sender: FDA-Public Use
  Company Number: US-PFIZER INC-2021411714

PATIENT
  Age: 71 Year
  Sex: Male

DRUGS (4)
  1. RETACRIT [Suspect]
     Active Substance: EPOETIN ALFA-EPBX
     Indication: Prostate cancer
     Dosage: 20000 IU, WEEKLY
  2. RETACRIT [Suspect]
     Active Substance: EPOETIN ALFA-EPBX
     Indication: Adenocarcinoma
     Dosage: 4000 IU
  3. RETACRIT [Suspect]
     Active Substance: EPOETIN ALFA-EPBX
     Indication: Myelodysplastic syndrome
  4. RETACRIT [Suspect]
     Active Substance: EPOETIN ALFA-EPBX
     Indication: Anaemia

REACTIONS (3)
  - Dyspnoea [Unknown]
  - Haemoglobin decreased [Unknown]
  - Off label use [Unknown]
